FAERS Safety Report 9295248 (Version 1)
Quarter: 2013Q2

REPORT INFORMATION
  Report Type: Spontaneous
  Country: US (occurrence: None)
  Receive Date: 20130516
  Receipt Date: 20130516
  Transmission Date: 20140414
  Serious: Yes (Hospitalization)
  Sender: FDA-Public Use
  Company Number: None

PATIENT
  Age: 45 Year
  Sex: Male
  Weight: 106 kg

DRUGS (7)
  1. HYDROMORPHONE [Suspect]
     Indication: PAIN
     Dosage: 4 MG Q6H PRN?DATES-PRIOR TO ADMISSION
     Route: 048
  2. ORDANSETRON [Concomitant]
  3. DULOXETINE [Concomitant]
  4. PREGABALIN [Concomitant]
  5. CITALOPRAM [Concomitant]
  6. LAMOTRIGINE [Concomitant]
  7. MECLIZINE [Concomitant]

REACTIONS (3)
  - Lethargy [None]
  - Mental status changes [None]
  - Depressed level of consciousness [None]
